FAERS Safety Report 7641658-3 (Version None)
Quarter: 2011Q3

REPORT INFORMATION
  Report Type: 
  Country: None (occurrence: None)
  Receive Date: 20110728
  Receipt Date: 20110720
  Transmission Date: 20111222
  Serious: Yes (Hospitalization)
  Sender: FDA-Public Use
  Company Number: CA-GLAXOSMITHKLINE-A0929757A

PATIENT
  Sex: Female
  Weight: 85.9 kg

DRUGS (5)
  1. DANAZOL [Concomitant]
  2. PROMACTA [Suspect]
     Indication: IDIOPATHIC THROMBOCYTOPENIC PURPURA
     Dosage: 50MG SEE DOSAGE TEXT
     Route: 048
     Dates: start: 20100707
  3. PREDNISONE [Concomitant]
     Indication: IDIOPATHIC THROMBOCYTOPENIC PURPURA
     Dosage: 5MG PER DAY
     Route: 065
     Dates: start: 20040101
  4. CELLCEPT [Concomitant]
     Indication: IDIOPATHIC THROMBOCYTOPENIC PURPURA
     Dosage: 500MG PER DAY
     Route: 065
     Dates: start: 20040101
  5. CYCLOSPORINE [Concomitant]
     Indication: IDIOPATHIC THROMBOCYTOPENIC PURPURA
     Dosage: 100MG PER DAY
     Route: 065
     Dates: start: 20040101, end: 20110509

REACTIONS (9)
  - THROMBOCYTOPENIA [None]
  - VOMITING [None]
  - RETROPERITONEAL LYMPHADENOPATHY [None]
  - WEIGHT DECREASED [None]
  - B-CELL LYMPHOMA [None]
  - ABDOMINAL PAIN [None]
  - NAUSEA [None]
  - ASTHENIA [None]
  - LYMPHOMA [None]
